FAERS Safety Report 5121302-X (Version None)
Quarter: 2006Q4

REPORT INFORMATION
  Report Type: 
  Country: None (occurrence: None)
  Receive Date: 20061002
  Receipt Date: 20060921
  Transmission Date: 20070319
  Serious: Yes (Hospitalization)
  Sender: FDA-Public Use
  Company Number: 2006035562

PATIENT
  Sex: Male

DRUGS (1)
  1. GEODON [Suspect]

REACTIONS (2)
  - AGITATION [None]
  - HEART RATE IRREGULAR [None]
